FAERS Safety Report 18461450 (Version 1)
Quarter: 2020Q4

REPORT INFORMATION
  Report Type: Report from Study
  Country: US (occurrence: US)
  Receive Date: 20201104
  Receipt Date: 20201104
  Transmission Date: 20210114
  Serious: No
  Sender: FDA-Public Use
  Company Number: US-IPSEN BIOPHARMACEUTICALS, INC.-2020-20582

PATIENT
  Sex: Female

DRUGS (1)
  1. SOMATULINE DEPOT [Suspect]
     Active Substance: LANREOTIDE ACETATE
     Indication: CARCINOID TUMOUR OF THE APPENDIX
     Dosage: 120 MG/0.5ML (ROTATE UPPER OUTER BUTTOCK)
     Route: 058
     Dates: end: 2020

REACTIONS (2)
  - Drug ineffective [Unknown]
  - Adverse event [Unknown]
